FAERS Safety Report 9299378 (Version 2)
Quarter: 2013Q4

REPORT INFORMATION
  Report Type: Spontaneous
  Country: US (occurrence: US)
  Receive Date: 20130520
  Receipt Date: 20131108
  Transmission Date: 20140711
  Serious: Yes (Hospitalization)
  Sender: FDA-Public Use
  Company Number: US-B.I. PHARMACEUTICALS,INC./RIDGEFIELD-2013-BI-13774BP

PATIENT
  Age: 71 Year
  Sex: Female
  Weight: 74.84 kg

DRUGS (10)
  1. PRADAXA [Suspect]
     Indication: ATRIAL FIBRILLATION
     Dosage: 150 MG
     Route: 048
     Dates: start: 20120201, end: 20120210
  2. AMARYL [Concomitant]
     Dosage: 8 MG
     Route: 048
  3. CELEBREX [Concomitant]
     Dosage: 200 MG
     Route: 048
  4. HYDROCHLOROTHIAZIDE [Concomitant]
     Dosage: 25 MG
     Route: 048
  5. FOLIC ACID [Concomitant]
     Dosage: 1 MG
     Route: 048
  6. METHOTREXATE [Concomitant]
     Dosage: 2.5 MG
     Route: 048
  7. TYLENOL [Concomitant]
     Route: 048
  8. OMEPRAZOLE [Concomitant]
     Dosage: 20 MG
     Route: 048
  9. METOPROLOL [Concomitant]
     Dosage: 50 MG
     Route: 048
  10. CARDIZEM CD [Concomitant]
     Dosage: 240 MG
     Route: 048

REACTIONS (1)
  - Lower gastrointestinal haemorrhage [Unknown]
